FAERS Safety Report 6989980-8 (Version None)
Quarter: 2010Q3

REPORT INFORMATION
  Report Type: 
  Country: None (occurrence: None)
  Receive Date: 20100916
  Receipt Date: 20100327
  Transmission Date: 20110219
  Serious: Yes (Other)
  Sender: FDA-Public Use
  Company Number: US-PFIZER INC-2010039457

PATIENT
  Sex: Female
  Weight: 72.562 kg

DRUGS (2)
  1. LYRICA [Suspect]
     Indication: NEURALGIA
     Dosage: 200 MG, 2X/DAY
     Route: 048
     Dates: start: 20090901
  2. IBUPROFEN [Concomitant]
     Indication: PROCEDURAL PAIN
     Dosage: 600 MG, AS NEEDED

REACTIONS (5)
  - BLOOD GLUCOSE INCREASED [None]
  - DEPRESSION [None]
  - DYSPNOEA [None]
  - SLEEP DISORDER [None]
  - WHEEZING [None]
